FAERS Safety Report 7141118-2 (Version None)
Quarter: 2010Q4

REPORT INFORMATION
  Report Type: 
  Country: None (occurrence: None)
  Receive Date: 20101202
  Receipt Date: 20101202
  Transmission Date: 20110411
  Serious: Yes (Other)
  Sender: FDA-Public Use
  Company Number: None

PATIENT
  Sex: Female
  Weight: 54.7 kg

DRUGS (9)
  1. GAMMAGARD [Suspect]
     Indication: MYASTHENIA GRAVIS
     Dosage: GAMMAGARD 20 GRAM IV
     Route: 042
     Dates: start: 20101115
  2. GAMMAGARD [Suspect]
     Dosage: GAMMAGARD 20 GRAM IV
     Route: 042
     Dates: start: 20101116
  3. FUROSEMIDE [Concomitant]
  4. ASPIRIN [Concomitant]
  5. POTASSIUM CHLORIDE [Concomitant]
  6. METOPROLOL [Concomitant]
  7. PLAVIX [Concomitant]
  8. LISINOPRIL [Concomitant]
  9. MESTINON [Concomitant]

REACTIONS (3)
  - ASTHENIA [None]
  - DIARRHOEA [None]
  - ILL-DEFINED DISORDER [None]
